FAERS Safety Report 19821475 (Version 1)
Quarter: 2021Q3

REPORT INFORMATION
  Report Type: Spontaneous
  Country: US (occurrence: US)
  Receive Date: 20210913
  Receipt Date: 20210913
  Transmission Date: 20211014
  Serious: Yes (Other)
  Sender: FDA-Public Use
  Company Number: US-MYLANLABS-2021M1060345

PATIENT
  Sex: Male

DRUGS (3)
  1. QUETIAPINE. [Suspect]
     Active Substance: QUETIAPINE
     Dosage: 800 MILLIGRAM, QD, EVERY NIGHT AT BEDTIME
     Route: 065
  2. QUETIAPINE. [Suspect]
     Active Substance: QUETIAPINE
     Dosage: 400 MILLIGRAM
     Route: 065
  3. QUETIAPINE. [Suspect]
     Active Substance: QUETIAPINE
     Indication: SCHIZOAFFECTIVE DISORDER
     Dosage: 600 MILLIGRAM, QD, EVERY NIGHT AT BEDTIME
     Route: 065

REACTIONS (4)
  - Metabolic syndrome [Recovering/Resolving]
  - Off label use [Unknown]
  - Weight increased [Recovering/Resolving]
  - Type 2 diabetes mellitus [Recovering/Resolving]
